FAERS Safety Report 9717879 (Version 1)
Quarter: 2013Q4

REPORT INFORMATION
  Report Type: Spontaneous
  Country: US (occurrence: US)
  Receive Date: 20131125
  Receipt Date: 20131125
  Transmission Date: 20140711
  Serious: No
  Sender: FDA-Public Use
  Company Number: US-VIVUS-2013V1000314

PATIENT
  Sex: Female
  Weight: 83.26 kg

DRUGS (1)
  1. QSYMIA 3.75MG/23MG [Suspect]
     Indication: WEIGHT DECREASED
     Route: 048
     Dates: start: 20130420

REACTIONS (7)
  - Somnolence [Recovered/Resolved]
  - Cognitive disorder [Not Recovered/Not Resolved]
  - Headache [Not Recovered/Not Resolved]
  - Feeling abnormal [Recovering/Resolving]
  - Mental status changes [Recovering/Resolving]
  - Thirst [Recovering/Resolving]
  - Inappropriate schedule of drug administration [Recovered/Resolved]
